FAERS Safety Report 4913050-3 (Version None)
Quarter: 2006Q1

REPORT INFORMATION
  Report Type: 
  Country: None (occurrence: None)
  Receive Date: 20060210
  Receipt Date: 20060127
  Transmission Date: 20060701
  Serious: Yes (Death)
  Sender: FDA-Public Use
  Company Number: 2005S1006982

PATIENT
  Age: 93 Year
  Sex: Female
  Weight: 36.7414 kg

DRUGS (7)
  1. FENTANYL TRANSDERMAL SYSTEM [Suspect]
     Indication: PAIN
     Dosage: 50 MCG/HR;Q3D;TDER
     Route: 062
     Dates: start: 20050707, end: 20050719
  2. FENTANYL TRANSDERMAL SYSTEM [Suspect]
     Indication: PAIN
     Dosage: 100 MCG/HR;Q3D;TDER
     Route: 062
     Dates: start: 20050707, end: 20050719
  3. DOCUSATE SODIUM/SENNA [Concomitant]
  4. OXYCODONE HCL [Concomitant]
  5. PARACETAMOL/HYDROCODONE [Concomitant]
  6. BITARTRATE [Concomitant]
  7. ALPRAZOLAM [Concomitant]

REACTIONS (3)
  - AGITATION [None]
  - PAIN [None]
  - PHARMACEUTICAL PRODUCT COMPLAINT [None]
